FAERS Safety Report 19163593 (Version 1)
Quarter: 2021Q2

REPORT INFORMATION
  Report Type: Spontaneous
  Country: US (occurrence: US)
  Receive Date: 20210421
  Receipt Date: 20210421
  Transmission Date: 20210717
  Serious: Yes (Other)
  Sender: FDA-Public Use
  Company Number: NVSC2021US085230

PATIENT
  Sex: Male

DRUGS (1)
  1. TACROLIMUS. [Suspect]
     Active Substance: TACROLIMUS
     Indication: TRANSPLANT REJECTION
     Dosage: UNK
     Route: 065

REACTIONS (6)
  - Schizophrenia [Unknown]
  - Scratch [Unknown]
  - Delusion [Unknown]
  - Feeling abnormal [Unknown]
  - Psychotic disorder [Unknown]
  - Sleep deficit [Unknown]
